FAERS Safety Report 5805962-3 (Version None)
Quarter: 2008Q3

REPORT INFORMATION
  Report Type: 
  Country: None (occurrence: None)
  Receive Date: 20080710
  Receipt Date: 20080630
  Transmission Date: 20090109
  Serious: Yes (Other)
  Sender: FDA-Public Use
  Company Number: US-ROCHE-573378

PATIENT
  Sex: Male

DRUGS (2)
  1. PEG-INTERFERON A-2A (RO 25-8310) [Suspect]
     Dosage: FORM: PRE-FILLED SYRINGE (PFS)
     Route: 065
     Dates: start: 20080512
  2. RIBAVIRIN [Suspect]
     Route: 065
     Dates: start: 20080512

REACTIONS (3)
  - LOGORRHOEA [None]
  - SLEEP DISORDER [None]
  - SOLILOQUY [None]
